FAERS Safety Report 9386062 (Version 3)
Quarter: 2013Q3

REPORT INFORMATION
  Report Type: Spontaneous
  Country: BR (occurrence: BR)
  Receive Date: 20130706
  Receipt Date: 20130731
  Transmission Date: 20140515
  Serious: Yes (Other)
  Sender: FDA-Public Use
  Company Number: BR-ABBOTT-13X-020-1111357-00

PATIENT
  Age: 6 Year
  Sex: Female
  Weight: 19 kg

DRUGS (1)
  1. KLARICID PEDIATRICO [Suspect]
     Indication: SINUSITIS
     Dosage: THE TREATMENT SHOULD LAST FOR 10 DAYS
     Route: 048
     Dates: start: 20130618, end: 20130623

REACTIONS (9)
  - Delirium [Recovered/Resolved]
  - Pyrexia [Recovered/Resolved]
  - Cough [Recovered/Resolved]
  - Neck pain [Recovered/Resolved]
  - Drug ineffective [Unknown]
  - Crying [Recovered/Resolved]
  - Middle insomnia [Recovered/Resolved]
  - Pathogen resistance [Unknown]
  - Prescribed underdose [Unknown]
